FAERS Safety Report 16169142 (Version 1)
Quarter: 2019Q2

REPORT INFORMATION
  Report Type: Spontaneous
  Country: US (occurrence: US)
  Receive Date: 20190406
  Receipt Date: 20190406
  Transmission Date: 20190711
  Serious: No
  Sender: FDA-Public Use
  Company Number: None

PATIENT
  Age: 45 Year
  Sex: Male
  Weight: 73.35 kg

DRUGS (1)
  1. LEVOFLOXACIN 500MG TABLETS [Suspect]
     Active Substance: LEVOFLOXACIN
     Indication: PROPHYLAXIS
     Dosage: ?          QUANTITY:1 TABLET(S);?
     Route: 048
     Dates: start: 20190405, end: 20190405

REACTIONS (2)
  - Tremor [None]
  - Muscle twitching [None]

NARRATIVE: CASE EVENT DATE: 20190405
